FAERS Safety Report 8848339 (Version 1)
Quarter: 2012Q4

REPORT INFORMATION
  Report Type: 
  Country: BR (occurrence: BR)
  Receive Date: 20121019
  Receipt Date: 20121019
  Transmission Date: 20130627
  Serious: Yes (Other)
  Sender: FDA-Public Use
  Company Number: BR-AMGEN-BRASP2012006943

PATIENT
  Age: 63 Year
  Sex: Female
  Weight: 68 kg

DRUGS (6)
  1. ENBREL [Suspect]
     Indication: RHEUMATOID ARTHRITIS
     Dosage: 50 mg, weekly
     Route: 058
     Dates: start: 201103
  2. LOSARTAN [Concomitant]
     Dosage: 50 mg, qd
  3. ENALAPRIL [Concomitant]
     Indication: HYPERTENSION
     Dosage: 5 mg, qd
  4. LEFLUNOMIDE [Concomitant]
     Dosage: 20 mg, 1x/day
  5. CHLOROQUINE [Concomitant]
     Dosage: UNK, once daily
  6. PARACETAMOL [Concomitant]
     Indication: PAIN
     Dosage: UNK, as needed

REACTIONS (2)
  - Dizziness [Unknown]
  - Blindness unilateral [Not Recovered/Not Resolved]
